FAERS Safety Report 21603100 (Version 1)
Quarter: 2022Q4

REPORT INFORMATION
  Report Type: Spontaneous
  Country: US (occurrence: US)
  Receive Date: 20221116
  Receipt Date: 20221116
  Transmission Date: 20230113
  Serious: No
  Sender: FDA-Public Use
  Company Number: US-OptiNose US, Inc-2022OPT000064

PATIENT
  Age: 6 Year
  Sex: Male

DRUGS (2)
  1. XHANCE [Suspect]
     Active Substance: FLUTICASONE PROPIONATE
     Indication: Product used for unknown indication
     Route: 045
  2. LORATADINE [Concomitant]
     Active Substance: LORATADINE
     Indication: Rhinitis perennial
     Route: 065

REACTIONS (3)
  - Tic [Recovering/Resolving]
  - Flat affect [Recovered/Resolved]
  - Anger [Recovered/Resolved]
